FAERS Safety Report 18217504 (Version 1)
Quarter: 2020Q3

REPORT INFORMATION
  Report Type: Other
  Country: GB (occurrence: GB)
  Receive Date: 20200901
  Receipt Date: 20200901
  Transmission Date: 20201103
  Serious: Yes (Hospitalization)
  Sender: FDA-Public Use
  Company Number: GB-EMCURE PHARMACEUTICALS LTD-2020-EPL-001210

PATIENT
  Age: 45 Year
  Sex: Male

DRUGS (6)
  1. VERAPAMIL HYDROCHLORIDE. [Suspect]
     Active Substance: VERAPAMIL HYDROCHLORIDE
     Indication: CLUSTER HEADACHE
     Dosage: 80 MILLIGRAM, QD (EVERY NIGHT)
  2. GABAPENTIN. [Concomitant]
     Active Substance: GABAPENTIN
     Dosage: 600 MILLIGRAM, DAILY
  3. PROPANTHELINE BROMIDE. [Concomitant]
     Active Substance: PROPANTHELINE BROMIDE
     Dosage: 30 MILLIGRAM, QD (EVERY NIGHT)
  4. SUMATRIPTAN. [Concomitant]
     Active Substance: SUMATRIPTAN
     Dosage: 20MG/0.1ML, AS NECESSARY
  5. MIRTAZAPINE. [Concomitant]
     Active Substance: MIRTAZAPINE
     Dosage: 30 MILLIGRAM, QD (AT NIGHT)
  6. MORPHGESIC [Concomitant]
     Active Substance: MORPHINE SULFATE
     Dosage: 20 MILLIGRAM, DAILY

REACTIONS (4)
  - Hypersensitivity [Unknown]
  - Overdose [Unknown]
  - Sinus node dysfunction [Recovered/Resolved]
  - Hypotension [Unknown]
